FAERS Safety Report 10061047 (Version 2)
Quarter: 2014Q2

REPORT INFORMATION
  Report Type: Spontaneous
  Country: US (occurrence: US)
  Receive Date: 20140405
  Receipt Date: 20140405
  Transmission Date: 20141212
  Serious: Yes (Other)
  Sender: FDA-Public Use
  Company Number: US-GE HEALTHCARE MEDICAL DIAGNOSTICS-OSCN-PR-0806S-0382

PATIENT
  Sex: Female

DRUGS (3)
  1. GADOLINIUM (UNSPECIFIED) [Suspect]
     Indication: PRODUCT USED FOR UNKNOWN INDICATION
     Dates: start: 200612, end: 200612
  2. GADOLINIUM (UNSPECIFIED) [Suspect]
     Dates: start: 200711, end: 200711
  3. GADOLINIUM (UNSPECIFIED) [Suspect]
     Dates: start: 200801, end: 200801

REACTIONS (1)
  - Nephrogenic systemic fibrosis [Not Recovered/Not Resolved]
